FAERS Safety Report 25255534 (Version 1)
Quarter: 2025Q2

REPORT INFORMATION
  Report Type: Spontaneous
  Country: US (occurrence: None)
  Receive Date: 20250429
  Receipt Date: 20250429
  Transmission Date: 20250716
  Serious: Yes (Death)
  Sender: FDA-CTU
  Company Number: None

PATIENT
  Age: 75 Year
  Sex: Female
  Weight: 64.8 kg

DRUGS (11)
  1. CEFTRIAXONE [Suspect]
     Active Substance: CEFTRIAXONE
     Indication: Liver abscess
     Dosage: FREQUENCY : DAILY;?
     Route: 042
     Dates: start: 20250316, end: 20250422
  2. ALBUMIN HUMAN [Concomitant]
     Active Substance: ALBUMIN HUMAN
     Dates: start: 20250317, end: 20250318
  3. FUROSEMIDE [Concomitant]
     Active Substance: FUROSEMIDE
     Dates: start: 20250321, end: 20250323
  4. HEPARIN [Concomitant]
     Active Substance: HEPARIN SODIUM
     Dates: start: 20250319, end: 20250323
  5. METRONIDAZOLE [Concomitant]
     Active Substance: METRONIDAZOLE
     Dates: start: 20250317, end: 20250322
  6. MIDODRINE [Concomitant]
     Active Substance: MIDODRINE
     Dates: start: 20250317, end: 20250323
  7. NOREPINEPHRINE [Concomitant]
     Active Substance: NOREPINEPHRINE
     Dates: start: 20250322, end: 20250323
  8. OXYBUTYNIN [Concomitant]
     Active Substance: OXYBUTYNIN
     Dates: start: 20250317, end: 20250319
  9. PIPERACILLIN SODIUM\TAZOBACTAM SODIUM [Concomitant]
     Active Substance: PIPERACILLIN SODIUM\TAZOBACTAM SODIUM
     Dates: start: 20250319, end: 20250321
  10. MIRALAX [Concomitant]
     Active Substance: POLYETHYLENE GLYCOL 3350
     Dates: start: 20250316, end: 20250323
  11. TAMSULOSIN [Concomitant]
     Active Substance: TAMSULOSIN
     Dates: start: 20250317, end: 20250322

REACTIONS (8)
  - Hypoxia [None]
  - Respiratory distress [None]
  - Infusion related reaction [None]
  - Back pain [None]
  - Hypersensitivity [None]
  - Bradycardia [None]
  - Hypotension [None]
  - Pulse absent [None]

NARRATIVE: CASE EVENT DATE: 20250323
